FAERS Safety Report 8826739 (Version 1)
Quarter: 2012Q4

REPORT INFORMATION
  Report Type: 
  Country: US (occurrence: US)
  Receive Date: 20121005
  Receipt Date: 20121005
  Transmission Date: 20130627
  Serious: Yes (Death)
  Sender: FDA-Public Use
  Company Number: US-GLAXOSMITHKLINE-A0996192A

PATIENT
  Age: 67 Year
  Sex: Male

DRUGS (4)
  1. HYCAMTIN [Suspect]
     Indication: LUNG NEOPLASM MALIGNANT
     Dosage: 3MG Cyclic
     Route: 048
     Dates: start: 20120809
  2. PROCHLORPERAZINE [Concomitant]
  3. HYDROCODONE BITARTRATE [Concomitant]
  4. DEXAMETHASONE [Concomitant]

REACTIONS (1)
  - Death [Fatal]
